FAERS Safety Report 8770616 (Version 2)
Quarter: 2012Q4

REPORT INFORMATION
  Report Type: 
  Country: JP (occurrence: JP)
  Receive Date: 20120906
  Receipt Date: 20120926
  Transmission Date: 20130627
  Serious: Yes (Hospitalization)
  Sender: FDA-Public Use
  Company Number: JP-ROCHE-1117616

PATIENT
  Age: 67 Year
  Sex: Female
  Weight: 70 kg

DRUGS (8)
  1. XELODA [Suspect]
     Indication: COLON CANCER
     Dosage: It is one administering weekly holiday medicine for 2 weeks
     Route: 048
     Dates: start: 20120402, end: 20120904
  2. XELODA [Suspect]
     Indication: ADJUVANT THERAPY
  3. MEVALOTIN [Concomitant]
     Route: 048
  4. NIFEDIPINE [Concomitant]
     Route: 048
  5. CALFINA [Concomitant]
     Route: 048
  6. FOSAMAX [Concomitant]
     Route: 048
  7. PYDOXAL [Concomitant]
     Route: 048
     Dates: start: 20120402
  8. DAI-KENCHU-TO [Concomitant]
     Route: 048
     Dates: start: 20120604

REACTIONS (1)
  - Cerebral infarction [Recovering/Resolving]
